FAERS Safety Report 4327548-2 (Version None)
Quarter: 2004Q1

REPORT INFORMATION
  Report Type: 
  Country: None (occurrence: None)
  Receive Date: 20040325
  Receipt Date: 20040312
  Transmission Date: 20041129
  Serious: Yes (Hospitalization, Other)
  Sender: FDA-Public Use
  Company Number: HQWYE775512MAR04

PATIENT
  Age: 64 Year
  Sex: Female

DRUGS (1)
  1. ADVIL [Suspect]
     Dosage: ORAL
     Route: 048
     Dates: start: 20000509, end: 20000511

REACTIONS (2)
  - GASTRITIS EROSIVE [None]
  - HAEMATEMESIS [None]
